FAERS Safety Report 9461376 (Version 1)
Quarter: 2013Q3

REPORT INFORMATION
  Report Type: Spontaneous
  Country: FR (occurrence: FR)
  Receive Date: 20130816
  Receipt Date: 20130816
  Transmission Date: 20140515
  Serious: Yes (Death, Life-Threatening)
  Sender: FDA-Public Use
  Company Number: FR-GENZYME-POMP-1003198

PATIENT
  Age: 7 Month
  Sex: Male

DRUGS (2)
  1. MYOZYME [Suspect]
     Indication: GLYCOGEN STORAGE DISEASE TYPE II
     Dosage: UNK
     Route: 042
     Dates: start: 201303
  2. MYOZYME [Suspect]
     Dosage: UNK
     Route: 042

REACTIONS (2)
  - Respiratory tract congestion [Unknown]
  - Death [Fatal]
